FAERS Safety Report 6841073-6 (Version None)
Quarter: 2010Q3

REPORT INFORMATION
  Report Type: 
  Country: None (occurrence: None)
  Receive Date: 20100714
  Receipt Date: 20070625
  Transmission Date: 20110219
  Serious: No
  Sender: FDA-Public Use
  Company Number: US-PFIZER INC-2007052811

PATIENT
  Sex: Female
  Weight: 60 kg

DRUGS (7)
  1. CHANTIX [Suspect]
     Dates: start: 20070511
  2. BACTRIM [Suspect]
     Indication: BRONCHITIS
     Dates: start: 20070511
  3. TENORMIN [Concomitant]
  4. DYAZIDE [Concomitant]
  5. MEVACOR [Concomitant]
  6. POTASSIUM CHLORIDE [Concomitant]
  7. ESTRACE [Concomitant]

REACTIONS (2)
  - NAUSEA [None]
  - VOMITING [None]
